FAERS Safety Report 10659506 (Version 4)
Quarter: 2015Q1

REPORT INFORMATION
  Report Type: Report from Study
  Country: US (occurrence: US)
  Receive Date: 20141217
  Receipt Date: 20150318
  Transmission Date: 20150720
  Serious: Yes (Other)
  Sender: FDA-Public Use
  Company Number: US-BAYER-2014-163186

PATIENT
  Age: 72 Year
  Sex: Female

DRUGS (4)
  1. STIVARGA [Suspect]
     Active Substance: REGORAFENIB
     Indication: COLON CANCER
     Dosage: UNK
  2. STIVARGA [Suspect]
     Active Substance: REGORAFENIB
     Indication: COLON CANCER
     Dosage: 160 MG/DAY (4 TABLETS EVERY MORNING FOR 21 DAYS WITHHOLD FOR 7 DAYS, THEN REPEAT CYCLE)
     Route: 048
     Dates: start: 20141007, end: 20141015
  3. STIVARGA [Suspect]
     Active Substance: REGORAFENIB
     Indication: COLON CANCER
     Dosage: 120 MG, QD (3QD)
     Route: 048
     Dates: start: 20141020, end: 20150126
  4. STIVARGA [Suspect]
     Active Substance: REGORAFENIB
     Indication: COLON CANCER
     Dosage: UNK

REACTIONS (9)
  - Palmar-plantar erythrodysaesthesia syndrome [None]
  - Anorectal discomfort [None]
  - Rectal haemorrhage [None]
  - Diarrhoea [None]
  - Hypertension [Recovered/Resolved]
  - Erythema [None]
  - Peripheral swelling [Recovered/Resolved]
  - Haematochezia [Recovered/Resolved]
  - Bone marrow failure [Recovered/Resolved]

NARRATIVE: CASE EVENT DATE: 20141010
